FAERS Safety Report 4915892-7 (Version None)
Quarter: 2006Q1

REPORT INFORMATION
  Report Type: 
  Country: None (occurrence: None)
  Receive Date: 20060214
  Receipt Date: 20060207
  Transmission Date: 20060701
  Serious: Yes (Death)
  Sender: FDA-Public Use
  Company Number: TCI2006A00622

PATIENT
  Age: 73 Year
  Sex: Female

DRUGS (2)
  1. ACTOS [Suspect]
     Indication: DIABETES MELLITUS
     Dosage: 15 MG (15 MG, 1 D)
     Route: 048
     Dates: start: 20060101, end: 20060101
  2. SULFONAMIDES, UREA DERIVATIVES [Concomitant]

REACTIONS (2)
  - DUODENAL ULCER [None]
  - SHOCK HAEMORRHAGIC [None]
